FAERS Safety Report 8393653 (Version 3)
Quarter: 2013Q1

REPORT INFORMATION
  Report Type: Spontaneous
  Country: US (occurrence: None)
  Receive Date: 20101210
  Receipt Date: 20121211
  Transmission Date: 20140127
  Serious: Yes (Other)
  Sender: FDA-Public Use
  Company Number: 2010US004935

PATIENT
  Age: 7 Year
  Sex: Male

DRUGS (3)
  1. PROTOPIC [Suspect]
     Indication: DERMATITIS ATOPIC
     Route: 061
     Dates: start: 200903, end: 201003
  2. FLUOCINOLONE ACETONIDE [Concomitant]
  3. TRIAMCINOLONE [Concomitant]

REACTIONS (1)
  - Lentigo [None]
